FAERS Safety Report 16057815 (Version 1)
Quarter: 2019Q1

REPORT INFORMATION
  Report Type: Spontaneous
  Country: AU (occurrence: AU)
  Receive Date: 20190311
  Receipt Date: 20190311
  Transmission Date: 20190418
  Serious: Yes (Hospitalization, Other)
  Sender: FDA-Public Use
  Company Number: AU-TEVA-2008B-01752

PATIENT
  Age: 75 Year
  Sex: Male

DRUGS (1)
  1. OLANZAPINE. [Suspect]
     Active Substance: OLANZAPINE
     Indication: MAJOR DEPRESSION
     Dosage: 2.5 MG AT NIGHT, FOLLOWED WITH AN EXTRA 5 MG DOSE, AND FURTHER 5 MG OVER 36 HOURS
     Route: 048

REACTIONS (2)
  - Anticholinergic syndrome [Recovered/Resolved]
  - Delirium [Recovered/Resolved]
